FAERS Safety Report 6673512-8 (Version None)
Quarter: 2010Q2

REPORT INFORMATION
  Report Type: 
  Country: None (occurrence: None)
  Receive Date: 20100408
  Receipt Date: 20100330
  Transmission Date: 20101027
  Serious: Yes (Other)
  Sender: FDA-Public Use
  Company Number: US-SANOFI-AVENTIS-2010SA018634

PATIENT
  Age: 66 Year
  Sex: Female

DRUGS (5)
  1. MULTAQ [Suspect]
     Indication: ATRIAL FIBRILLATION
     Route: 048
     Dates: start: 20091001
  2. COUMADIN [Concomitant]
  3. DEMADEX [Concomitant]
  4. POTASSIUM [Concomitant]
  5. THYROLAR [Concomitant]

REACTIONS (2)
  - ATRIAL FIBRILLATION [None]
  - GASTROINTESTINAL HYPERMOTILITY [None]
